FAERS Safety Report 5267059-3 (Version None)
Quarter: 2007Q1

REPORT INFORMATION
  Report Type: 
  Country: None (occurrence: None)
  Receive Date: 20070316
  Receipt Date: 20070308
  Transmission Date: 20070707
  Serious: Yes (Other)
  Sender: FDA-Public Use
  Company Number: US-JNJFOC-20060106000

PATIENT
  Sex: Female

DRUGS (3)
  1. ORTHO EVRA [Suspect]
     Indication: CONTRACEPTION
     Route: 062
  2. TOPROL-XL [Concomitant]
     Indication: MIGRAINE PROPHYLAXIS
  3. ZOLOFT [Concomitant]
     Indication: DEPRESSION

REACTIONS (5)
  - CONVULSION [None]
  - HYPERTENSION [None]
  - ISCHAEMIC CEREBRAL INFARCTION [None]
  - MIGRAINE [None]
  - MITRAL VALVE PROLAPSE [None]
